FAERS Safety Report 4439099-5 (Version None)
Quarter: 2004Q3

REPORT INFORMATION
  Report Type: 
  Country: None (occurrence: None)
  Receive Date: 20040901
  Receipt Date: 20040820
  Transmission Date: 20050211
  Serious: Yes (Hospitalization)
  Sender: FDA-Public Use
  Company Number: FR-BRISTOL-MYERS SQUIBB COMPANY-12679353

PATIENT
  Age: 52 Year
  Sex: Female

DRUGS (20)
  1. FUNGIZONE [Suspect]
     Dosage: DOSES RANGING FROM 10-30 MG PER DAY
     Route: 048
     Dates: start: 20040503, end: 20040531
  2. ZOVIRAX [Suspect]
     Route: 048
     Dates: start: 20040512, end: 20040527
  3. VANCOMYCIN [Suspect]
     Route: 042
     Dates: start: 20040501, end: 20040527
  4. OROKEN [Suspect]
     Route: 048
     Dates: start: 20040527, end: 20040529
  5. LEXOMIL [Suspect]
     Route: 048
     Dates: start: 20040521, end: 20040604
  6. VALACYCLOVIR HCL [Suspect]
     Route: 048
     Dates: start: 20040527, end: 20040530
  7. TOPALGIC [Concomitant]
  8. LASIX [Concomitant]
  9. ROCEPHIN [Concomitant]
  10. ZYLORIC [Concomitant]
  11. TIENAM [Concomitant]
  12. OMEPRAZOLE [Concomitant]
  13. SOLU-MEDROL [Concomitant]
  14. POLARAMINE [Concomitant]
  15. PLITICAN [Concomitant]
  16. TAVANIC [Concomitant]
  17. KYTRIL [Concomitant]
  18. ZAVEDOS [Concomitant]
  19. ARACYTINE [Concomitant]
  20. ATARAX [Concomitant]

REACTIONS (5)
  - DERMATITIS EXFOLIATIVE [None]
  - ERYTHEMA [None]
  - PRURITUS [None]
  - SKIN INFLAMMATION [None]
  - URTICARIA [None]
